FAERS Safety Report 17060623 (Version 1)
Quarter: 2019Q4

REPORT INFORMATION
  Report Type: Spontaneous
  Country: SE (occurrence: SE)
  Receive Date: 20191121
  Receipt Date: 20191121
  Transmission Date: 20200122
  Serious: Yes (Hospitalization)
  Sender: FDA-Public Use
  Company Number: SE-MYLANLABS-2019M1111322

PATIENT
  Sex: Female

DRUGS (2)
  1. SERTRALINE [Suspect]
     Active Substance: SERTRALINE HYDROCHLORIDE
     Indication: PRODUCT USED FOR UNKNOWN INDICATION
     Route: 048
     Dates: start: 20190221, end: 20190221
  2. LERGIGAN (PROMETHAZINE HYDROCHLORIDE) [Suspect]
     Active Substance: PROMETHAZINE HYDROCHLORIDE
     Indication: PRODUCT USED FOR UNKNOWN INDICATION
     Dosage: UNK
     Route: 048
     Dates: start: 20190221, end: 20190221

REACTIONS (7)
  - Akathisia [Unknown]
  - Intentional overdose [Unknown]
  - Tachycardia [Unknown]
  - Hallucination [Unknown]
  - Intentional self-injury [Unknown]
  - Maternal exposure during pregnancy [Unknown]
  - Mydriasis [Unknown]

NARRATIVE: CASE EVENT DATE: 20190221
